FAERS Safety Report 4871539-X (Version None)
Quarter: 2005Q4

REPORT INFORMATION
  Report Type: 
  Country: None (occurrence: None)
  Receive Date: 20051230
  Receipt Date: 20051214
  Transmission Date: 20060501
  Serious: Yes (Hospitalization, Other)
  Sender: FDA-Public Use
  Company Number: BR-2005-016058

PATIENT
  Age: 47 Year
  Sex: Male
  Weight: 62 kg

DRUGS (38)
  1. BETAFERON 250 UG, 500 UG AND COPAXONE (BETAFERON (SH Y 579E)) INJECTIO [Suspect]
     Indication: RELAPSING-REMITTING MULTIPLE SCLEROSIS
     Dosage: SEE IMAGE
     Route: 058
     Dates: start: 20050621, end: 20050731
  2. BETAFERON 250 UG, 500 UG AND COPAXONE (BETAFERON (SH Y 579E)) INJECTIO [Suspect]
     Indication: RELAPSING-REMITTING MULTIPLE SCLEROSIS
     Dosage: SEE IMAGE
     Route: 058
     Dates: start: 20050801, end: 20050822
  3. PARACETAMOL [Concomitant]
  4. IBUPROFEN [Concomitant]
  5. CYCLOBENZAPRINE (CYCLOBENZAPRINE) [Concomitant]
  6. BACLOFEN [Concomitant]
  7. CARBAMAZEPINE [Concomitant]
  8. FOLIC ACID [Concomitant]
  9. NITROFURANTOIN [Concomitant]
  10. MINERAL OIL EMULSION (MINERAL OIL EMULSION) [Concomitant]
  11. PAPIN (PAPIN) [Concomitant]
  12. PIPERACILLIN W/TAZOBACTAM (PIPERACILLIN, TAZOBACTAM) [Concomitant]
  13. SULFADIAZINE [Concomitant]
  14. DIPYRONE TAB [Concomitant]
  15. DOCUSATE (DOCUSATE) [Concomitant]
  16. BISACODYL (BISACODYL) [Concomitant]
  17. GLYCERIN (GLYCEROL) [Concomitant]
  18. HEPARIN [Concomitant]
  19. METOCLOPRAMIDE [Concomitant]
  20. INSULIN [Concomitant]
  21. METHYLPREDNISOLONE [Concomitant]
  22. METOCLOPRAMIDE [Concomitant]
  23. MINERAL OIL EMUSION (MINERAL OIL EMULSION) [Concomitant]
  24. CARBAMAZEPINE [Concomitant]
  25. CEFTRIAXONE [Concomitant]
  26. DIAZEPAM [Concomitant]
  27. GLYCERIN (GLYCEROL) [Concomitant]
  28. BISACODYL (BISACODYL) [Concomitant]
  29. CAPTOPRIL [Concomitant]
  30. AMIKACIN [Concomitant]
  31. AMOXICILLIN W/CLAVULANIC ACID (CLAVULANIC ACID) [Concomitant]
  32. CIPROFLOXACIN [Concomitant]
  33. DIAZEPAM [Concomitant]
  34. DIMENHYDRINATE [Concomitant]
  35. MINERAL OIL [Concomitant]
  36. BISACODYL [Concomitant]
  37. NITROFURANTOIN [Concomitant]
  38. PARACETAMOL [Concomitant]

REACTIONS (18)
  - AREFLEXIA [None]
  - AZOTAEMIA [None]
  - DECUBITUS ULCER [None]
  - DISEASE PROGRESSION [None]
  - INFECTION IN AN IMMUNOCOMPROMISED HOST [None]
  - MALAISE [None]
  - MYELITIS TRANSVERSE [None]
  - NEUROGENIC BLADDER [None]
  - PARAPLEGIA [None]
  - PSEUDOMONAS INFECTION [None]
  - RELAPSING-REMITTING MULTIPLE SCLEROSIS [None]
  - SPINAL SHOCK [None]
  - TACHYCARDIA [None]
  - ULCER [None]
  - UNEVALUABLE EVENT [None]
  - URINARY TRACT INFECTION [None]
  - URINARY TRACT OBSTRUCTION [None]
  - UROSEPSIS [None]
